FAERS Safety Report 7632084-1 (Version None)
Quarter: 2011Q3

REPORT INFORMATION
  Report Type: 
  Country: None (occurrence: None)
  Receive Date: 20110725
  Receipt Date: 20110718
  Transmission Date: 20111222
  Serious: Yes (Other)
  Sender: FDA-Public Use
  Company Number: US-JNJFOC-20110708180

PATIENT
  Age: 5 Decade
  Sex: Female

DRUGS (2)
  1. INVEGA [Suspect]
     Indication: BIPOLAR DISORDER
     Route: 048
     Dates: start: 20101101, end: 20110701
  2. DEPAKOTE [Concomitant]
     Route: 048

REACTIONS (1)
  - WEIGHT INCREASED [None]
